FAERS Safety Report 19025517 (Version 1)
Quarter: 2021Q1

REPORT INFORMATION
  Report Type: Spontaneous
  Country: US (occurrence: US)
  Receive Date: 20210316
  Receipt Date: 20210316
  Transmission Date: 20210420
  Serious: Yes (Hospitalization)
  Sender: FDA-Public Use
  Company Number: None

PATIENT
  Age: 75 Year
  Sex: Male
  Weight: 111.77 kg

DRUGS (1)
  1. DICLOFENAC (DICLOFENAC NA 75MG TAB, EC) [Suspect]
     Active Substance: DICLOFENAC
     Indication: PAIN
     Route: 048
     Dates: start: 20181116, end: 20181117

REACTIONS (3)
  - Acute kidney injury [None]
  - Gastric haemorrhage [None]
  - Renal tubular necrosis [None]

NARRATIVE: CASE EVENT DATE: 20181116
